FAERS Safety Report 8520058-8 (Version None)
Quarter: 2012Q2

REPORT INFORMATION
  Report Type: 
  Country: None (occurrence: None)
  Receive Date: 20120406
  Receipt Date: 20100916
  Transmission Date: 20120825
  Serious: Yes (Other)
  Sender: FDA-Public Use
  Company Number: PHHY2010US60177

PATIENT
  Age: 68 Year
  Sex: Male

DRUGS (1)
  1. TASIGNA [Suspect]
     Indication: CHRONIC MYELOID LEUKAEMIA
     Dosage: 200 MG, BID, ORAL
     Route: 048
     Dates: start: 20100901

REACTIONS (7)
  - WHITE BLOOD CELL COUNT INCREASED [None]
  - EYE HAEMORRHAGE [None]
  - CONSTIPATION [None]
  - MALAISE [None]
  - FLUID OVERLOAD [None]
  - RASH [None]
  - OEDEMA PERIPHERAL [None]
